FAERS Safety Report 12601890 (Version 1)
Quarter: 2016Q3

REPORT INFORMATION
  Report Type: Spontaneous
  Country: US (occurrence: None)
  Receive Date: 20160727
  Receipt Date: 20160727
  Transmission Date: 20161109
  Serious: Yes (Life-Threatening, Hospitalization, Other)
  Sender: FDA-Public Use
  Company Number: US-ALSI-201600203

PATIENT
  Age: 61 Year
  Sex: Male

DRUGS (2)
  1. NITROUS OXIDE. [Suspect]
     Active Substance: NITROUS OXIDE
     Indication: GENERAL ANAESTHESIA
     Route: 055
  2. AVASTIN [Concomitant]
     Active Substance: BEVACIZUMAB

REACTIONS (11)
  - Procedural complication [None]
  - Cushing^s syndrome [None]
  - Glioblastoma multiforme [None]
  - Heart rate decreased [None]
  - Blood pressure increased [None]
  - Impaired healing [None]
  - Malignant neoplasm progression [None]
  - Vascular pseudoaneurysm [None]
  - Wound dehiscence [None]
  - Cerebrospinal fluid leakage [None]
  - Pneumocephalus [None]
